FAERS Safety Report 21141825 (Version 1)
Quarter: 2022Q3

REPORT INFORMATION
  Report Type: Spontaneous
  Country: US (occurrence: None)
  Receive Date: 20220727
  Receipt Date: 20220727
  Transmission Date: 20221027
  Serious: Yes (Disabling)
  Sender: FDA-Public Use
  Company Number: None

PATIENT
  Age: 48 Year
  Sex: Male
  Weight: 99 kg

DRUGS (15)
  1. MONTELUKAST SODIUM [Suspect]
     Active Substance: MONTELUKAST SODIUM
     Indication: Asthma
     Dosage: FREQUENCY : AT BEDTIME;?
     Route: 048
  2. MONTELUKAST SODIUM [Suspect]
     Active Substance: MONTELUKAST SODIUM
     Indication: Multiple allergies
  3. DEVICE [Concomitant]
     Active Substance: DEVICE
  4. FINASTERIDE [Concomitant]
     Active Substance: FINASTERIDE
  5. DEXILANT [Concomitant]
     Active Substance: DEXLANSOPRAZOLE
  6. FLUTICASONE [Concomitant]
     Active Substance: FLUTICASONE
  7. Propionate NS [Concomitant]
  8. ROSUVASTATIN [Concomitant]
     Active Substance: ROSUVASTATIN
  9. GABAPENTIN [Concomitant]
     Active Substance: GABAPENTIN
  10. LEVOCETIRIZINE [Concomitant]
     Active Substance: LEVOCETIRIZINE
  11. RYBELSUS [Concomitant]
     Active Substance: SEMAGLUTIDE
  12. SERTRALINE [Concomitant]
     Active Substance: SERTRALINE HYDROCHLORIDE
  13. MELATONIN [Concomitant]
     Active Substance: MELATONIN
  14. NICOTINE [Concomitant]
     Active Substance: NICOTINE
  15. NICOTINE [Concomitant]
     Active Substance: NICOTINE

REACTIONS (5)
  - Depression [None]
  - Anxiety [None]
  - Anger [None]
  - Blood glucose decreased [None]
  - Therapy cessation [None]

NARRATIVE: CASE EVENT DATE: 20220723
